FAERS Safety Report 17251688 (Version 1)
Quarter: 2020Q1

REPORT INFORMATION
  Report Type: Spontaneous
  Country: GR (occurrence: GR)
  Receive Date: 20200109
  Receipt Date: 20200109
  Transmission Date: 20200409
  Serious: Yes (Other)
  Sender: FDA-Public Use
  Company Number: GR-PFIZER INC-2020006580

PATIENT
  Sex: Male
  Weight: 81 kg

DRUGS (6)
  1. ATORVASTATIN CALCIUM. [Suspect]
     Active Substance: ATORVASTATIN CALCIUM
     Indication: CORONARY ARTERY DISEASE
     Dosage: 10 MG, UNK
     Route: 048
     Dates: start: 20030301, end: 20040601
  2. EZETIMIBE AND SIMVASTATIN [Suspect]
     Active Substance: EZETIMIBE\SIMVASTATIN
     Indication: CORONARY ARTERY DISEASE
     Dosage: 1 DF, UNK
     Route: 048
     Dates: start: 20080101, end: 20080401
  3. SALOSPIR [Concomitant]
     Active Substance: ASPIRIN
     Indication: CORONARY ARTERY DISEASE
     Dosage: 100 MG, UNK
     Route: 048
     Dates: start: 20021212, end: 20191127
  4. METOPROLOL. [Concomitant]
     Active Substance: METOPROLOL
     Indication: CORONARY ARTERY DISEASE
     Dosage: 50 MG, UNK
     Route: 048
     Dates: start: 20021212, end: 20191127
  5. ROSUVASTATIN. [Suspect]
     Active Substance: ROSUVASTATIN
     Indication: CORONARY ARTERY DISEASE
     Dosage: 10 MG, UNK
     Route: 048
     Dates: start: 20080301, end: 20170301
  6. SIMVASTATIN. [Suspect]
     Active Substance: SIMVASTATIN
     Indication: CORONARY ARTERY DISEASE
     Dosage: 20 MG, UNK
     Route: 048
     Dates: start: 20040620, end: 20050901

REACTIONS (1)
  - Coeliac disease [Recovered/Resolved]

NARRATIVE: CASE EVENT DATE: 20030301
